FAERS Safety Report 9878475 (Version 1)
Quarter: 2014Q1

REPORT INFORMATION
  Report Type: Spontaneous
  Country: IT (occurrence: IT)
  Receive Date: 20140206
  Receipt Date: 20140206
  Transmission Date: 20141002
  Serious: Yes (Other)
  Sender: FDA-Public Use
  Company Number: IT-MYLANLABS-2014S1002144

PATIENT
  Age: 27 Year
  Sex: Female

DRUGS (8)
  1. MYCOPHENOLATE [Suspect]
     Indication: RENAL TRANSPLANT
  2. TACROLIMUS [Concomitant]
     Indication: RENAL TRANSPLANT
  3. IRON [Concomitant]
     Indication: ANAEMIA
  4. NIFEDIPINE [Concomitant]
     Indication: HYPERTENSION
  5. METHYLDOPA [Concomitant]
     Indication: HYPERTENSION
  6. ACICLOVIR [Concomitant]
     Indication: EPSTEIN-BARR VIRUS INFECTION
  7. BETAMETHASONE [Concomitant]
     Indication: FOETAL DISORDER
  8. PREDNISOLONE [Concomitant]
     Indication: RENAL TRANSPLANT

REACTIONS (8)
  - Preterm premature rupture of membranes [Unknown]
  - Epstein-Barr virus infection [Unknown]
  - Proteinuria [Unknown]
  - Anaemia [Unknown]
  - Blood pressure increased [Unknown]
  - Malaise [Unknown]
  - Exposure during pregnancy [Unknown]
  - Normal newborn [None]
